FAERS Safety Report 15798443 (Version 1)
Quarter: 2019Q1

REPORT INFORMATION
  Report Type: Spontaneous
  Country: US (occurrence: US)
  Receive Date: 20190108
  Receipt Date: 20190108
  Transmission Date: 20190417
  Serious: Yes (Death)
  Sender: FDA-Public Use
  Company Number: US-LANNETT COMPANY, INC.-US-2018LAN004653

PATIENT
  Sex: Male

DRUGS (7)
  1. AMPHOTERICIN B. [Concomitant]
     Active Substance: AMPHOTERICIN B
     Indication: ANTIFUNGAL TREATMENT
     Dosage: 4 MG/KG, QD
  2. ABACAVIR. [Suspect]
     Active Substance: ABACAVIR
     Indication: ANTIRETROVIRAL THERAPY
     Dosage: UNK
     Route: 065
  3. FLUCYTOSINE. [Concomitant]
     Active Substance: FLUCYTOSINE
     Dosage: 400 MG, QD
     Route: 048
  4. FLUCYTOSINE. [Concomitant]
     Active Substance: FLUCYTOSINE
     Dosage: 200 MG, QD
     Route: 048
  5. LAMIVUDINE. [Suspect]
     Active Substance: LAMIVUDINE
     Indication: ANTIRETROVIRAL THERAPY
     Dosage: UNK
     Route: 065
  6. DOLUTEGRAVIR [Suspect]
     Active Substance: DOLUTEGRAVIR
     Indication: ANTIRETROVIRAL THERAPY
     Dosage: UNK
     Route: 065
  7. FLUCYTOSINE. [Concomitant]
     Active Substance: FLUCYTOSINE
     Indication: ANTIFUNGAL TREATMENT
     Dosage: 100 MG/KG, QD
     Route: 048

REACTIONS (3)
  - Meningitis cryptococcal [Fatal]
  - Encephalitis [Fatal]
  - Immune reconstitution inflammatory syndrome [Fatal]
